FAERS Safety Report 4730270-1 (Version None)
Quarter: 2005Q3

REPORT INFORMATION
  Report Type: 
  Country: None (occurrence: None)
  Receive Date: 20050801
  Receipt Date: 20050608
  Transmission Date: 20060218
  Serious: Yes (Other)
  Sender: FDA-Public Use
  Company Number: FR-ROCHE-407575

PATIENT
  Age: 34 Year
  Sex: Male

DRUGS (3)
  1. CLONAZEPAM [Suspect]
     Route: 065
     Dates: start: 20050115
  2. TOPALGIC [Concomitant]
  3. COLCHIMAX [Concomitant]
     Indication: GOUT
     Dates: start: 20050115

REACTIONS (4)
  - CEREBRAL VENTRICLE DILATATION [None]
  - MUSCLE FATIGUE [None]
  - PHOTOPHOBIA [None]
  - VISUAL FIELD DEFECT [None]
